FAERS Safety Report 7405239-9 (Version None)
Quarter: 2011Q2

REPORT INFORMATION
  Report Type: 
  Country: None (occurrence: None)
  Receive Date: 20110411
  Receipt Date: 20101019
  Transmission Date: 20111010
  Serious: Yes (Hospitalization, Other)
  Sender: FDA-Public Use
  Company Number: US-BAYER-201025654NA

PATIENT
  Age: 15 Year
  Sex: Female
  Weight: 63.636 kg

DRUGS (8)
  1. OCELLA [Suspect]
     Indication: PREMENSTRUAL SYNDROME
     Route: 065
     Dates: start: 20030101, end: 20080101
  2. OCELLA [Suspect]
     Indication: MENSTRUAL CYCLE MANAGEMENT
  3. HYDROCODONE BITARTRATE [Concomitant]
     Indication: PRODUCT USED FOR UNKNOWN INDICATION
     Route: 065
  4. YASMIN [Suspect]
     Indication: PREMENSTRUAL SYNDROME
     Route: 048
     Dates: start: 20030101, end: 20080101
  5. YASMIN [Suspect]
     Indication: CONTRACEPTION
  6. AZITHROMYCIN [Concomitant]
     Indication: PRODUCT USED FOR UNKNOWN INDICATION
     Route: 065
  7. YASMIN [Suspect]
     Indication: MENSTRUAL CYCLE MANAGEMENT
  8. OCELLA [Suspect]
     Indication: CONTRACEPTION

REACTIONS (2)
  - MYOCARDIAL INFARCTION [None]
  - GALLBLADDER DISORDER [None]
